FAERS Safety Report 11383543 (Version 1)
Quarter: 2015Q3

REPORT INFORMATION
  Report Type: Spontaneous
  Country: JP (occurrence: JP)
  Receive Date: 20150814
  Receipt Date: 20150814
  Transmission Date: 20151125
  Serious: Yes (Hospitalization)
  Sender: FDA-Public Use
  Company Number: JP-FRESENIUS KABI-FK201503921

PATIENT
  Age: 38 Year
  Sex: Female

DRUGS (5)
  1. CYCLOPHOSPHAMIDE (MANUFACTURER UNKNOWN) [Suspect]
     Active Substance: CYCLOPHOSPHAMIDE
     Indication: STEM CELL TRANSPLANT
     Route: 065
  2. TACROLIMUS. [Suspect]
     Active Substance: TACROLIMUS
     Indication: PROPHYLAXIS AGAINST GRAFT VERSUS HOST DISEASE
  3. METHOTREXATE (MANUFACTURER UNKNOWN) [Suspect]
     Active Substance: METHOTREXATE
     Indication: PROPHYLAXIS AGAINST GRAFT VERSUS HOST DISEASE
     Route: 065
  4. ANTITHYMOCYTE IMMUNOGLOBULIN [Suspect]
     Active Substance: THYMOCYTE IMMUNE GLOBULIN NOS
     Indication: STEM CELL TRANSPLANT
  5. FLUDARABINE [Suspect]
     Active Substance: FLUDARABINE PHOSPHATE
     Indication: STEM CELL TRANSPLANT
     Route: 065

REACTIONS (2)
  - Post transplant lymphoproliferative disorder [Recovered/Resolved]
  - Febrile neutropenia [Recovered/Resolved]
